FAERS Safety Report 7890250-4 (Version None)
Quarter: 2011Q4

REPORT INFORMATION
  Report Type: 
  Country: None (occurrence: None)
  Receive Date: 20111103
  Receipt Date: 20110801
  Transmission Date: 20120403
  Serious: No
  Sender: FDA-Public Use
  Company Number: US-AMGEN-USASP2011025332

PATIENT
  Age: 69 Year
  Sex: Female
  Weight: 85.2 kg

DRUGS (6)
  1. ENBREL [Suspect]
     Indication: PSORIATIC ARTHROPATHY
     Dosage: 25 MG, 2 TIMES/WK
     Dates: start: 20040601
  2. FOLIC ACID [Concomitant]
  3. LEVOTHYROXINE SODIUM [Concomitant]
  4. BYSTOLIC [Concomitant]
  5. MAGNESIUM [Concomitant]
  6. ENBREL [Suspect]
     Indication: PSORIASIS

REACTIONS (6)
  - DRUG INEFFECTIVE [None]
  - CONTUSION [None]
  - NODULE [None]
  - PSORIATIC ARTHROPATHY [None]
  - ARTHRALGIA [None]
  - PSORIASIS [None]
